FAERS Safety Report 7118428-8 (Version None)
Quarter: 2010Q4

REPORT INFORMATION
  Report Type: 
  Country: None (occurrence: None)
  Receive Date: 20101123
  Receipt Date: 20101102
  Transmission Date: 20110411
  Serious: No
  Sender: FDA-Public Use
  Company Number: JP-ASTRAZENECA-2010SE49318

PATIENT
  Age: 68 Year
  Sex: Female
  Weight: 69 kg

DRUGS (3)
  1. CRESTOR [Suspect]
     Indication: DYSLIPIDAEMIA
     Route: 048
     Dates: start: 20100707
  2. ACTOS [Concomitant]
     Route: 048
     Dates: start: 20100308
  3. LOSARTAN POTASSIUM AND HYDROCHLOROTHIAZIDE [Concomitant]
     Dosage: DAILY
     Route: 048
     Dates: start: 20100308

REACTIONS (1)
  - DYSGEUSIA [None]
